FAERS Safety Report 20166718 (Version 2)
Quarter: 2024Q2

REPORT INFORMATION
  Report Type: Spontaneous
  Country: DE (occurrence: DE)
  Receive Date: 20211209
  Receipt Date: 20240508
  Transmission Date: 20240716
  Serious: Yes (Hospitalization, Congenital Anomaly)
  Sender: FDA-Public Use
  Company Number: DE-EMBRYOTOX-202103479

PATIENT
  Sex: Male
  Weight: 4 kg

DRUGS (4)
  1. AZITHROMYCIN [Suspect]
     Active Substance: AZITHROMYCIN
     Indication: Exposure to communicable disease
     Dosage: 500 MILLIGRAM, QD
     Route: 064
  2. COVAXIS [Concomitant]
     Indication: Immunisation
     Dosage: SINGLE
     Route: 064
     Dates: start: 20190129, end: 20190129
  3. INFLUENZA VIRUS VACCINE [Concomitant]
     Active Substance: INFLUENZA VIRUS VACCINE
     Indication: Immunisation
     Dosage: SINGLE
     Route: 064
  4. FOLIC ACID [Concomitant]
     Active Substance: FOLIC ACID
     Indication: Prophylaxis of neural tube defect
     Dosage: UNK
     Route: 064

REACTIONS (3)
  - Pyloric stenosis [Recovered/Resolved]
  - Medication error [Unknown]
  - Foetal exposure during pregnancy [Unknown]
